FAERS Safety Report 11590465 (Version 2)
Quarter: 2015Q4

REPORT INFORMATION
  Report Type: Report from Study
  Country: ES (occurrence: ES)
  Receive Date: 20151002
  Receipt Date: 20151006
  Transmission Date: 20160304
  Serious: Yes (Hospitalization, Disabling)
  Sender: FDA-Public Use
  Company Number: ES-JNJFOC-20150904730

PATIENT
  Age: 79 Year
  Sex: Female
  Weight: 82 kg

DRUGS (11)
  1. PANTOPRAZOLE [Concomitant]
     Active Substance: PANTOPRAZOLE SODIUM
  2. LOPERAMIDE [Concomitant]
     Active Substance: LOPERAMIDE
  3. ACYCLOVIR. [Concomitant]
     Active Substance: ACYCLOVIR
  4. RACECADOTRIL [Concomitant]
     Active Substance: RACECADOTRIL
  5. IBRUTINIB [Suspect]
     Active Substance: IBRUTINIB
     Indication: CHRONIC LYMPHOCYTIC LEUKAEMIA
     Route: 048
     Dates: start: 20150430, end: 20150605
  6. ENTECAVIR. [Concomitant]
     Active Substance: ENTECAVIR
  7. TRIMETOPRIM + SULFAMETOXAZOL [Concomitant]
     Active Substance: SULFAMETHOXAZOLE\TRIMETHOPRIM
  8. ALLOPURINOL. [Concomitant]
     Active Substance: ALLOPURINOL
  9. IBRUTINIB [Suspect]
     Active Substance: IBRUTINIB
     Indication: CHRONIC LYMPHOCYTIC LEUKAEMIA
     Route: 048
     Dates: start: 20150915
  10. IBRUTINIB [Suspect]
     Active Substance: IBRUTINIB
     Indication: CHRONIC LYMPHOCYTIC LEUKAEMIA
     Route: 048
     Dates: start: 20150605, end: 20150624
  11. IBRUTINIB [Suspect]
     Active Substance: IBRUTINIB
     Indication: CHRONIC LYMPHOCYTIC LEUKAEMIA
     Route: 048
     Dates: start: 20150107, end: 20150422

REACTIONS (4)
  - Haemorrhagic diathesis [Not Recovered/Not Resolved]
  - Otitis media [Not Recovered/Not Resolved]
  - Thrombocytopenia [Not Recovered/Not Resolved]
  - Mastoiditis [Not Recovered/Not Resolved]

NARRATIVE: CASE EVENT DATE: 20150605
